FAERS Safety Report 4610944-3 (Version None)
Quarter: 2005Q1

REPORT INFORMATION
  Report Type: 
  Country: None (occurrence: None)
  Receive Date: 20050315
  Receipt Date: 20050315
  Transmission Date: 20050727
  Serious: Yes (Other)
  Sender: FDA-Public Use
  Company Number: None

PATIENT
  Age: 14 Year
  Sex: Male
  Weight: 68.0396 kg

DRUGS (2)
  1. ABILIFY [Suspect]
     Indication: AFFECTIVE DISORDER
     Dosage: 1 DAY ORAL
     Route: 048
     Dates: start: 20050306, end: 20050308
  2. WELLBUTRIN [Concomitant]

REACTIONS (8)
  - AFFECTIVE DISORDER [None]
  - ANXIETY [None]
  - DISTURBANCE IN ATTENTION [None]
  - DYSPNOEA [None]
  - HEADACHE [None]
  - INSOMNIA [None]
  - NAUSEA [None]
  - THROAT TIGHTNESS [None]
